FAERS Safety Report 8428221-1 (Version None)
Quarter: 2012Q2

REPORT INFORMATION
  Report Type: 
  Country: None (occurrence: None)
  Receive Date: 20120611
  Receipt Date: 20120604
  Transmission Date: 20120825
  Serious: Yes (Other)
  Sender: FDA-Public Use
  Company Number: CHPA2012US009934

PATIENT
  Age: 84 Year
  Sex: Female

DRUGS (4)
  1. VITAMIN B-12 [Concomitant]
  2. VITAMINS NOS [Concomitant]
  3. NUPERCAINAL HEMORRHOIDAL/ANES OINTMENT [Suspect]
     Indication: PAIN
     Dosage: AS DIRECTED, AS NEEDED
     Route: 061
     Dates: start: 19620101
  4. PREDNISONE TAB [Concomitant]

REACTIONS (2)
  - LUNG NEOPLASM MALIGNANT [None]
  - DIARRHOEA [None]
